FAERS Safety Report 17557471 (Version 5)
Quarter: 2020Q2

REPORT INFORMATION
  Report Type: Spontaneous
  Country: AU (occurrence: AU)
  Receive Date: 20200318
  Receipt Date: 20200604
  Transmission Date: 20200713
  Serious: Yes (Hospitalization, Other)
  Sender: FDA-Public Use
  Company Number: AU-MYLANLABS-2020M1024574

PATIENT
  Age: 20 Year
  Sex: Female
  Weight: 195 kg

DRUGS (12)
  1. CLOZARIL [Suspect]
     Active Substance: CLOZAPINE
     Indication: SCHIZOPHRENIA
     Dosage: UNK
     Route: 048
  2. CLOZARIL [Suspect]
     Active Substance: CLOZAPINE
     Indication: DEPRESSION
  3. CLOZARIL [Suspect]
     Active Substance: CLOZAPINE
     Indication: HALLUCINATION, VISUAL
     Dosage: 150 MILLIGRAM
     Route: 048
     Dates: start: 2020, end: 20200303
  4. CLOZARIL [Suspect]
     Active Substance: CLOZAPINE
     Indication: SCHIZOAFFECTIVE DISORDER
     Dosage: 150 MILLIGRAM
     Route: 048
     Dates: start: 20200221
  5. CLOZARIL [Suspect]
     Active Substance: CLOZAPINE
     Indication: HALLUCINATION, AUDITORY
     Dosage: 150 MILLIGRAM
     Route: 048
     Dates: start: 20200409
  6. CLOZARIL [Suspect]
     Active Substance: CLOZAPINE
     Indication: BORDERLINE PERSONALITY DISORDER
     Dosage: 12.5 MILLIGRAM
     Route: 048
     Dates: start: 2020
  7. QUETIAPINE. [Concomitant]
     Active Substance: QUETIAPINE
     Dosage: 900 MILLIGRAM, NOCTE
  8. OLANZAPINE. [Concomitant]
     Active Substance: OLANZAPINE
     Dosage: 10 MILLIGRAM, NOCTE
  9. ESCITALOPRAM [Concomitant]
     Active Substance: ESCITALOPRAM OXALATE
     Dosage: 40 MILLIGRAM, QD
  10. OLANZAPINE. [Concomitant]
     Active Substance: OLANZAPINE
     Dosage: 5 MILLIGRAM, MANE
  11. LITHIUM. [Concomitant]
     Active Substance: LITHIUM
     Dosage: 450 MILLIGRAM, MANE
  12. THYROXINE [Concomitant]
     Active Substance: LEVOTHYROXINE
     Dosage: 100 MICROGRAM, QD

REACTIONS (8)
  - White blood cell count increased [Recovered/Resolved]
  - Globulins increased [Unknown]
  - Pain [Unknown]
  - High density lipoprotein decreased [Unknown]
  - Myocarditis [Unknown]
  - Gastric bypass [Unknown]
  - Blood urea decreased [Unknown]
  - Eosinophil count increased [Unknown]

NARRATIVE: CASE EVENT DATE: 201908
